FAERS Safety Report 14294271 (Version 2)
Quarter: 2018Q1

REPORT INFORMATION
  Report Type: Spontaneous
  Country: DE (occurrence: DE)
  Receive Date: 20171217
  Receipt Date: 20180115
  Transmission Date: 20180509
  Serious: Yes (Death, Hospitalization, Other)
  Sender: FDA-Public Use
  Company Number: DE-BRISTOL-MYERS SQUIBB COMPANY-BMS-2017-114704

PATIENT
  Sex: Male

DRUGS (2)
  1. OPDIVO [Suspect]
     Active Substance: NIVOLUMAB
     Indication: BLADDER TRANSITIONAL CELL CARCINOMA
     Dosage: 120 MG, Q2WK
     Route: 042
     Dates: start: 20170915
  2. FENTANYL. [Concomitant]
     Active Substance: FENTANYL
     Indication: PRODUCT USED FOR UNKNOWN INDICATION
     Dosage: 12.5 ?G, UNK
     Route: 065

REACTIONS (4)
  - Malignant neoplasm progression [Fatal]
  - Respiratory failure [Unknown]
  - Dyspnoea [Unknown]
  - Pneumonia [Fatal]
